FAERS Safety Report 5705529-1 (Version None)
Quarter: 2008Q2

REPORT INFORMATION
  Report Type: 
  Country: None (occurrence: None)
  Receive Date: 20080415
  Receipt Date: 20080404
  Transmission Date: 20081010
  Serious: Yes (Other)
  Sender: FDA-Public Use
  Company Number: CH-ROCHE-557278

PATIENT
  Age: 63 Year
  Sex: Female
  Weight: 86 kg

DRUGS (11)
  1. BONIVA [Suspect]
     Indication: OSTEOPOROSIS
     Route: 048
     Dates: start: 20071101, end: 20071231
  2. PREDNISONE [Suspect]
     Route: 065
  3. ATACAND [Concomitant]
  4. BISOPRODOL FUMARATE [Concomitant]
  5. BISOPRODOL FUMARATE [Concomitant]
  6. ZURCAL [Concomitant]
  7. IMUREK [Concomitant]
  8. PRAVALOTIN [Concomitant]
  9. XANAX [Concomitant]
  10. MOTILIUM [Concomitant]
  11. CALCIMAGON [Concomitant]

REACTIONS (2)
  - ABSCESS JAW [None]
  - IMPAIRED HEALING [None]
